FAERS Safety Report 14724118 (Version 1)
Quarter: 2018Q2

REPORT INFORMATION
  Report Type: Spontaneous
  Country: US (occurrence: US)
  Receive Date: 20180405
  Receipt Date: 20180405
  Transmission Date: 20180711
  Serious: No
  Sender: FDA-Public Use
  Company Number: US-BIOGEN-2016BI00307925

PATIENT
  Age: 61 Year
  Sex: Female

DRUGS (3)
  1. PLEGRIDY [Suspect]
     Active Substance: PEGINTERFERON BETA-1A
     Indication: MULTIPLE SCLEROSIS
     Route: 058
     Dates: start: 20160913
  2. PLEGRIDY [Suspect]
     Active Substance: PEGINTERFERON BETA-1A
     Route: 065
     Dates: start: 20160830
  3. PLEGRIDY [Suspect]
     Active Substance: PEGINTERFERON BETA-1A
     Route: 058
     Dates: start: 20160830

REACTIONS (10)
  - Fall [Recovered/Resolved]
  - Diarrhoea [Recovered/Resolved]
  - Device malfunction [Unknown]
  - Influenza like illness [Recovered/Resolved]
  - Visual impairment [Unknown]
  - Balance disorder [Recovered/Resolved]
  - Injection site erythema [Unknown]
  - Dizziness [Not Recovered/Not Resolved]
  - Head injury [Unknown]
  - Vomiting [Recovered/Resolved]

NARRATIVE: CASE EVENT DATE: 20160830
